FAERS Safety Report 11272950 (Version 1)
Quarter: 2015Q3

REPORT INFORMATION
  Report Type: Spontaneous
  Country: US (occurrence: None)
  Receive Date: 20150713
  Receipt Date: 20150713
  Transmission Date: 20151125
  Serious: Yes (Hospitalization)
  Sender: FDA-Public Use
  Company Number: None

PATIENT
  Age: 58 Year
  Sex: Male
  Weight: 128.37 kg

DRUGS (1)
  1. CARDIZEM [Suspect]
     Active Substance: DILTIAZEM HYDROCHLORIDE
     Dosage: SLOW PUSH
     Route: 042

REACTIONS (3)
  - Atrial fibrillation [None]
  - Unresponsive to stimuli [None]
  - Heart rate irregular [None]

NARRATIVE: CASE EVENT DATE: 20150709
